FAERS Safety Report 12330598 (Version 1)
Quarter: 2016Q2

REPORT INFORMATION
  Report Type: Spontaneous
  Country: US (occurrence: None)
  Receive Date: 20160503
  Receipt Date: 20160503
  Transmission Date: 20160815
  Serious: Yes (Hospitalization, Disabling)
  Sender: FDA-Public Use
  Company Number: None

PATIENT
  Age: 30 Year
  Sex: Male
  Weight: 77.11 kg

DRUGS (1)
  1. HUMALOG KWIKPEN [Suspect]
     Active Substance: INSULIN LISPRO
     Indication: TYPE 1 DIABETES MELLITUS
     Dosage: IU BID SUBCUTANEOUS
     Route: 058
     Dates: start: 20160331, end: 20160331

REACTIONS (2)
  - Feeling abnormal [None]
  - Injection site abscess [None]

NARRATIVE: CASE EVENT DATE: 20160414
